FAERS Safety Report 9759779 (Version 2)
Quarter: 2013Q4

REPORT INFORMATION
  Report Type: Spontaneous
  Country: US (occurrence: US)
  Receive Date: 20131216
  Receipt Date: 20131216
  Transmission Date: 20140711
  Serious: No
  Sender: FDA-Public Use
  Company Number: US-GILEAD-2010-0029120

PATIENT
  Sex: Female
  Weight: 73.94 kg

DRUGS (20)
  1. LETAIRIS [Suspect]
     Indication: PULMONARY ARTERIAL HYPERTENSION
     Route: 048
     Dates: start: 20100415
  2. OXYGEN [Concomitant]
  3. SINGULAIR [Concomitant]
  4. PEPCID [Concomitant]
  5. AMBIEN [Concomitant]
  6. LASIX [Concomitant]
  7. DILAUDID [Concomitant]
  8. PREDNISONE [Concomitant]
  9. PILOCARPINE [Concomitant]
  10. AMLODIPINE [Concomitant]
  11. REVATIO [Concomitant]
  12. ALLEGRA [Concomitant]
  13. FENTANYL [Concomitant]
  14. FLUOXETINE [Concomitant]
  15. PENTOXYFYLLINE [Concomitant]
  16. NEXIUM [Concomitant]
  17. POTASSIUM [Concomitant]
  18. MIRALAX [Concomitant]
  19. VITAMIN D [Concomitant]
  20. LEVOTHYROXINE [Concomitant]

REACTIONS (3)
  - Blood iron decreased [Unknown]
  - Unevaluable event [Unknown]
  - Dyspnoea [Unknown]
